FAERS Safety Report 9096682 (Version 2)
Quarter: 2013Q2

REPORT INFORMATION
  Report Type: Report from Study
  Country: BR (occurrence: BR)
  Receive Date: 20130211
  Receipt Date: 20130418
  Transmission Date: 20140414
  Serious: Yes (Other)
  Sender: FDA-Public Use
  Company Number: PHHY2013BR011961

PATIENT
  Sex: Female

DRUGS (16)
  1. ONBREZ [Suspect]
     Indication: LUNG DISORDER
     Dosage: 300 UG, QD
  2. DIOVAN AMLO FIX [Suspect]
     Indication: BLOOD PRESSURE INCREASED
     Dosage: 1 DF(320/5MG), DAILY
     Route: 048
  3. SPIRIVA [Suspect]
  4. OXIMAX [Suspect]
     Dosage: 400 MG, UNK
  5. SERETIDE [Concomitant]
  6. DIUPRESS [Concomitant]
     Indication: POLYURIA
     Dosage: 1 DF(5/25MG), DAILY
     Route: 048
  7. SOMALGIN [Concomitant]
     Indication: CARDIAC DISORDER
     Dosage: 1 DF(100MG), DAILY
     Route: 048
  8. SIMVASTATIN [Concomitant]
     Indication: BLOOD CHOLESTEROL INCREASED
     Dosage: 1 DF(40MG), DAILY
     Route: 048
  9. OMEPRAZOLE [Concomitant]
     Indication: DYSPEPSIA
     Dosage: 1 DF(40MG), DAILY (IN FASTING)
     Route: 048
  10. GLIMEPIRIDE [Concomitant]
     Indication: BLOOD GLUCOSE ABNORMAL
     Dosage: 1 DF(6MG), DAILY
     Route: 048
  11. METFORMIN [Concomitant]
     Indication: BLOOD GLUCOSE ABNORMAL
     Dosage: 3 DF(850MG), DAILY
     Route: 048
  12. ATENSINA [Concomitant]
     Indication: CARDIAC DISORDER
     Dosage: 1 DF (0.100MG), DAILY
     Route: 048
  13. CONCARDIO [Concomitant]
     Indication: CARDIAC DISORDER
     Dosage: 1 DF(2.5MG), DAILY
     Route: 048
  14. ONGLYZA [Concomitant]
     Indication: BLOOD GLUCOSE ABNORMAL
     Dosage: 1 DF(5MG), DAILY
     Route: 048
  15. PROCIMAX [Concomitant]
     Indication: DEPRESSION
     Dosage: 2 DF(20MG), DAILY
     Route: 048
     Dates: start: 20130201
  16. RIVOTRIL [Concomitant]
     Indication: DEPRESSION
     Dosage: 0.5 DF (2MG), DAILY (EVERY NIGHT)
     Route: 048

REACTIONS (7)
  - Blood glucose increased [Not Recovered/Not Resolved]
  - Pneumonia [Recovered/Resolved]
  - Blood glucose decreased [Not Recovered/Not Resolved]
  - Chronic obstructive pulmonary disease [Recovering/Resolving]
  - Dyspnoea [Not Recovered/Not Resolved]
  - Blood pressure increased [Recovered/Resolved]
  - Dizziness [Recovering/Resolving]
